FAERS Safety Report 14712942 (Version 1)
Quarter: 2018Q2

REPORT INFORMATION
  Report Type: Spontaneous
  Country: US (occurrence: US)
  Receive Date: 20180404
  Receipt Date: 20180404
  Transmission Date: 20180711
  Serious: No
  Sender: FDA-Public Use
  Company Number: US-SHIRE-US201812559

PATIENT

DRUGS (3)
  1. FIRAZYR [Suspect]
     Active Substance: ICATIBANT ACETATE
     Indication: HEREDITARY ANGIOEDEMA
     Dosage: 30 MG, AS REQ^D
     Route: 058
  2. TREXALL [Concomitant]
     Active Substance: METHOTREXATE SODIUM
     Indication: RHEUMATOID ARTHRITIS
  3. TRAMADOL                           /00599202/ [Concomitant]
     Active Substance: TRAMADOL
     Indication: ARTHRITIS

REACTIONS (3)
  - Influenza like illness [Unknown]
  - Hereditary angioedema [Unknown]
  - Fatigue [Unknown]
